FAERS Safety Report 13138551 (Version 1)
Quarter: 2017Q1

REPORT INFORMATION
  Report Type: Spontaneous
  Country: US (occurrence: US)
  Receive Date: 20170123
  Receipt Date: 20170123
  Transmission Date: 20170428
  Serious: No
  Sender: FDA-Public Use
  Company Number: US-UNITED THERAPEUTICS-UNT-2016-012887

PATIENT
  Age: 32 Year
  Sex: Female
  Weight: 72.56 kg

DRUGS (3)
  1. LETAIRIS [Suspect]
     Active Substance: AMBRISENTAN
     Indication: PRODUCT USED FOR UNKNOWN INDICATION
     Dosage: 5 MG, QD
     Dates: start: 20151015
  2. ORENITRAM [Suspect]
     Active Substance: TREPROSTINIL
     Indication: PULMONARY HYPERTENSION
     Dosage: 6 MG, BID
     Route: 048
     Dates: start: 20150924
  3. ORENITRAM [Suspect]
     Active Substance: TREPROSTINIL
     Dosage: UNK

REACTIONS (2)
  - Drug dose omission [Unknown]
  - Decreased appetite [Unknown]

NARRATIVE: CASE EVENT DATE: 201608
